FAERS Safety Report 18779402 (Version 1)
Quarter: 2021Q1

REPORT INFORMATION
  Report Type: Spontaneous
  Country: US (occurrence: US)
  Receive Date: 20210125
  Receipt Date: 20210125
  Transmission Date: 20210419
  Serious: No
  Sender: FDA-Public Use
  Company Number: US-TARO-2020TAR01044

PATIENT

DRUGS (2)
  1. KETOCONAZOLE CREAM 2% [Suspect]
     Active Substance: KETOCONAZOLE
     Indication: ANAL PRURITUS
     Dosage: UNK, BID (APPLY EXTERNALLY 2X/DAY TO THE ANAL AREA)
     Route: 061
     Dates: start: 20200522, end: 20200525
  2. KETOCONAZOLE CREAM 2% [Suspect]
     Active Substance: KETOCONAZOLE
     Indication: ANORECTAL DISCOMFORT

REACTIONS (3)
  - Anorectal disorder [Recovering/Resolving]
  - Condition aggravated [Recovering/Resolving]
  - Drug ineffective [Unknown]

NARRATIVE: CASE EVENT DATE: 20200524
